FAERS Safety Report 11884030 (Version 1)
Quarter: 2016Q1

REPORT INFORMATION
  Report Type: Spontaneous
  Country: SG (occurrence: SG)
  Receive Date: 20160102
  Receipt Date: 20160102
  Transmission Date: 20160526
  Serious: Yes (Hospitalization, Other)
  Sender: FDA-Public Use
  Company Number: SG-ACCORD-036732

PATIENT
  Age: 33 Year
  Sex: Male

DRUGS (1)
  1. MITOMYCIN. [Suspect]
     Active Substance: MITOMYCIN
     Indication: CHEMOTHERAPY
     Dosage: RECEIVED FOR 60 MIN AT 42 0C AS HYPERTHERMIC INTRAPERITONCAL CHEMOTHERAPY (HIPEC) POSTOPERATIVELY.
     Route: 033

REACTIONS (3)
  - Scrotal ulcer [Recovered/Resolved]
  - Hydrocele [Recovered/Resolved]
  - Scrotal pain [Recovered/Resolved]
